FAERS Safety Report 6412272-2 (Version None)
Quarter: 2009Q4

REPORT INFORMATION
  Report Type: 
  Country: None (occurrence: None)
  Receive Date: 20091023
  Receipt Date: 20091016
  Transmission Date: 20100525
  Serious: Yes (Other)
  Sender: FDA-Public Use
  Company Number: US-ASTRAZENECA-2009SE20887

PATIENT
  Sex: Female

DRUGS (2)
  1. PRILOSEC OTC [Suspect]
     Route: 048
  2. PLAVIX [Suspect]
     Route: 065
     Dates: start: 20070101

REACTIONS (2)
  - CORONARY ARTERIAL STENT INSERTION [None]
  - STENT MALFUNCTION [None]
